FAERS Safety Report 13256930 (Version 2)
Quarter: 2017Q1

REPORT INFORMATION
  Report Type: Spontaneous
  Country: JP (occurrence: JP)
  Receive Date: 20170221
  Receipt Date: 20170306
  Transmission Date: 20170428
  Serious: Yes (Other)
  Sender: FDA-Public Use
  Company Number: JP-JNJFOC-20170128296

PATIENT
  Age: 9 Decade
  Sex: Female

DRUGS (3)
  1. TRAMCET [Suspect]
     Active Substance: ACETAMINOPHEN\TRAMADOL
     Indication: PRODUCT USED FOR UNKNOWN INDICATION
     Dosage: IN THE MORNING AND AFTERNOON
     Route: 048
  2. TRAMAL [Suspect]
     Active Substance: TRAMADOL
     Indication: PRODUCT USED FOR UNKNOWN INDICATION
     Route: 048
     Dates: start: 201701
  3. VOLTAREN [Concomitant]
     Active Substance: DICLOFENAC SODIUM
     Dosage: (14 DOSES) WERE ADDED ON 23-JAN-2017 OR 24-JAN-2017.
     Route: 054
     Dates: start: 201701

REACTIONS (2)
  - Medication error [Unknown]
  - Compression fracture [Not Recovered/Not Resolved]

NARRATIVE: CASE EVENT DATE: 201701
